FAERS Safety Report 6021407-5 (Version None)
Quarter: 2008Q4

REPORT INFORMATION
  Report Type: 
  Country: None (occurrence: None)
  Receive Date: 20081229
  Receipt Date: 20081223
  Transmission Date: 20090506
  Serious: Yes (Death)
  Sender: FDA-Public Use
  Company Number: B0551713A

PATIENT
  Age: 64 Year
  Sex: Male

DRUGS (8)
  1. RANITIDINE [Suspect]
  2. ZAPONEX [Suspect]
     Indication: SCHIZOPHRENIA
     Route: 048
     Dates: start: 20040818, end: 20060721
  3. CLOZAPINE [Suspect]
     Indication: SCHIZOPHRENIA
     Route: 048
     Dates: start: 20010701, end: 20040817
  4. ALBUTEROL SULFATE [Suspect]
  5. ALBUTEROL SULFATE [Concomitant]
     Indication: CHRONIC OBSTRUCTIVE PULMONARY DISEASE
  6. VALPROIC ACID [Concomitant]
  7. RANITIDINE [Concomitant]
  8. EPILIM [Concomitant]
     Dates: start: 20010101

REACTIONS (3)
  - CARDIAC ARREST [None]
  - CIRCULATORY COLLAPSE [None]
  - DRUG INTERACTION [None]
